FAERS Safety Report 13288747 (Version 3)
Quarter: 2017Q2

REPORT INFORMATION
  Report Type: Spontaneous
  Country: US (occurrence: US)
  Receive Date: 20170302
  Receipt Date: 20170426
  Transmission Date: 20170830
  Serious: No
  Sender: FDA-Public Use
  Company Number: US-PFIZER INC-2017088689

PATIENT
  Age: 63 Year
  Sex: Male

DRUGS (2)
  1. ALFUZOSIN [Interacting]
     Active Substance: ALFUZOSIN
     Indication: PROSTATOMEGALY
     Dosage: UNK (10 1 X)
  2. SERTRALINE HCL [Suspect]
     Active Substance: SERTRALINE HYDROCHLORIDE
     Indication: ANXIETY
     Dosage: UNK (25 1 X)

REACTIONS (6)
  - Dizziness [Unknown]
  - Headache [Unknown]
  - Vision blurred [Unknown]
  - Feeling abnormal [Unknown]
  - Drug interaction [Unknown]
  - Urinary tract disorder [Unknown]
